FAERS Safety Report 18272898 (Version 1)
Quarter: 2020Q3

REPORT INFORMATION
  Report Type: Spontaneous
  Country: US (occurrence: US)
  Receive Date: 20200916
  Receipt Date: 20200916
  Transmission Date: 20201103
  Serious: Yes (Other)
  Sender: FDA-Public Use
  Company Number: None

PATIENT
  Age: 47 Year
  Sex: Male
  Weight: 95.26 kg

DRUGS (2)
  1. ADVAIR HFA [Concomitant]
     Active Substance: FLUTICASONE PROPIONATE\SALMETEROL XINAFOATE
     Dates: start: 20200731, end: 20200915
  2. WIXELA INHUB [Suspect]
     Active Substance: FLUTICASONE PROPIONATE\SALMETEROL XINAFOATE
     Indication: ASTHMA
     Route: 048
     Dates: start: 20200731, end: 20200916

REACTIONS (6)
  - Product substitution issue [None]
  - Incorrect dose administered by device [None]
  - Feeling abnormal [None]
  - Dyspnoea [None]
  - Condition aggravated [None]
  - Device malfunction [None]

NARRATIVE: CASE EVENT DATE: 20200214
